FAERS Safety Report 9789736 (Version 1)
Quarter: 2013Q4

REPORT INFORMATION
  Report Type: Spontaneous
  Country: US (occurrence: None)
  Receive Date: 20131227
  Receipt Date: 20131227
  Transmission Date: 20140711
  Serious: Yes (Other)
  Sender: FDA-Public Use
  Company Number: CIO13073977

PATIENT
  Sex: Male

DRUGS (1)
  1. METAMUCIL [Suspect]
     Indication: INTESTINAL OBSTRUCTION
     Dosage: 2 TBSP 1 ONLY ORAL
     Route: 048
     Dates: start: 201311, end: 201311

REACTIONS (13)
  - Dyspnoea [None]
  - Palpitations [None]
  - Dizziness [None]
  - Depressed level of consciousness [None]
  - Visual field defect [None]
  - Paraesthesia [None]
  - Hypoaesthesia [None]
  - Nausea [None]
  - Diarrhoea [None]
  - Urticaria [None]
  - Intentional overdose [None]
  - Incorrect dose administered [None]
  - Hypersensitivity [None]
